FAERS Safety Report 9717261 (Version 1)
Quarter: 2013Q4

REPORT INFORMATION
  Report Type: Spontaneous
  Country: GB (occurrence: None)
  Receive Date: 20131125
  Receipt Date: 20131125
  Transmission Date: 20140711
  Serious: Yes (Disabling, Other)
  Sender: FDA-Public Use
  Company Number: AUR-APL-2013-09699

PATIENT
  Age: 38 Year
  Sex: Male
  Weight: 106 kg

DRUGS (2)
  1. LISINOPRIL [Suspect]
     Indication: HYPERTENSION
     Route: 048
  2. PARACETAMOL (PARACETAMOL) [Concomitant]

REACTIONS (2)
  - Dry mouth [None]
  - Condition aggravated [None]
